FAERS Safety Report 7964401-7 (Version None)
Quarter: 2011Q4

REPORT INFORMATION
  Report Type: 
  Country: None (occurrence: None)
  Receive Date: 20111121
  Receipt Date: 20110820
  Transmission Date: 20120403
  Serious: No
  Sender: FDA-Public Use
  Company Number: 1000022490

PATIENT
  Age: 73 Year
  Sex: Female

DRUGS (6)
  1. ZANTAC (RANITIDINE) (RANITIDINE) [Concomitant]
  2. THORAZINE (CHLORPROMAZINE) (CHLORPROMAZINE) [Concomitant]
  3. VIIBRYD [Suspect]
     Indication: MAJOR DEPRESSION
     Dosage: 10 MG (10 MG, 1 IN 1 D), ORAL 20 MG (20 MG, 1 IN 1 D), ORAL 40 MG (40 MG, 1 IN 1 D), ORAL
     Route: 048
     Dates: start: 20110727
  4. VIIBRYD [Suspect]
     Indication: MAJOR DEPRESSION
     Dosage: 10 MG (10 MG, 1 IN 1 D), ORAL 20 MG (20 MG, 1 IN 1 D), ORAL 40 MG (40 MG, 1 IN 1 D), ORAL
     Route: 048
     Dates: start: 20110713, end: 20110719
  5. VIIBRYD [Suspect]
     Indication: MAJOR DEPRESSION
     Dosage: 10 MG (10 MG, 1 IN 1 D), ORAL 20 MG (20 MG, 1 IN 1 D), ORAL 40 MG (40 MG, 1 IN 1 D), ORAL
     Route: 048
     Dates: start: 20110720, end: 20110726
  6. LIBRIUM (CHLORDIAZEPOXIDE) (CHLORDIAZEPOXIDE) [Concomitant]

REACTIONS (9)
  - SECRETION DISCHARGE [None]
  - DECREASED APPETITE [None]
  - INSOMNIA [None]
  - TENSION [None]
  - PARAESTHESIA [None]
  - NAUSEA [None]
  - DIZZINESS [None]
  - DRUG INEFFECTIVE [None]
  - UNEVALUABLE EVENT [None]
